FAERS Safety Report 19072443 (Version 1)
Quarter: 2021Q1

REPORT INFORMATION
  Report Type: Spontaneous
  Country: US (occurrence: US)
  Receive Date: 20210330
  Receipt Date: 20210330
  Transmission Date: 20210420
  Serious: Yes (Other)
  Sender: FDA-Public Use
  Company Number: US-GLAXOSMITHKLINE-US2021GSK069823

PATIENT
  Sex: Male

DRUGS (6)
  1. ZANTAC [Suspect]
     Active Substance: RANITIDINE HYDROCHLORIDE
     Indication: HIATUS HERNIA
     Dosage: 150 MG, MOST DAYS IT WAS DAILY, BUT AS NEEDED
     Route: 065
     Dates: start: 198801, end: 199501
  2. ZANTAC [Suspect]
     Active Substance: RANITIDINE HYDROCHLORIDE
     Indication: HIATUS HERNIA
     Dosage: 150 MG, MOST DAYS IT WAS DAILY, BUT AS NEEDED
     Route: 065
     Dates: start: 198801, end: 199501
  3. ZANTAC [Suspect]
     Active Substance: RANITIDINE HYDROCHLORIDE
     Dosage: 300 MG, MOST DAYS IT WAS DAILY, BUT AS NEEDED
     Route: 065
     Dates: start: 198801, end: 199501
  4. RANITIDINE. [Suspect]
     Active Substance: RANITIDINE
     Indication: HIATUS HERNIA
     Dosage: 150 MG, MOST DAYS IT WAS DAILY, BUT AS NEEDED
     Route: 065
     Dates: start: 199501, end: 202001
  5. RANITIDINE. [Suspect]
     Active Substance: RANITIDINE
     Indication: HIATUS HERNIA
     Dosage: 150 MG, MOST DAYS IT WAS DAILY, BUT AS NEEDED
     Route: 065
     Dates: start: 199501, end: 202001
  6. ZANTAC [Suspect]
     Active Substance: RANITIDINE HYDROCHLORIDE
     Dosage: 300 MG, MOST DAYS IT WAS DAILY, BUT AS NEEDED
     Route: 065
     Dates: start: 198801, end: 199501

REACTIONS (1)
  - Colorectal cancer [Unknown]
